FAERS Safety Report 23601357 (Version 1)
Quarter: 2024Q1

REPORT INFORMATION
  Report Type: Spontaneous
  Country: FR (occurrence: FR)
  Receive Date: 20240306
  Receipt Date: 20240306
  Transmission Date: 20240409
  Serious: Yes (Hospitalization)
  Sender: FDA-Public Use
  Company Number: FR-ACRAF SpA-2023-031299

PATIENT

DRUGS (11)
  1. XCOPRI [Suspect]
     Active Substance: CENOBAMATE
     Indication: Partial seizures
     Dosage: UNK
     Route: 048
     Dates: start: 202110
  2. XCOPRI [Suspect]
     Active Substance: CENOBAMATE
     Dosage: 300 MILLIGRAM, QD
     Route: 048
     Dates: start: 202305, end: 202307
  3. XCOPRI [Suspect]
     Active Substance: CENOBAMATE
     Dosage: 400 MILLIGRAM, QD
     Route: 048
     Dates: start: 202307
  4. KEPPRA [Concomitant]
     Active Substance: LEVETIRACETAM
     Indication: Partial seizures
     Dosage: UNK
     Route: 065
     Dates: start: 20220915
  5. KEPPRA [Concomitant]
     Active Substance: LEVETIRACETAM
     Dosage: 3500 MILLIGRAM
     Route: 065
     Dates: start: 202305
  6. VIMPAT [Concomitant]
     Active Substance: LACOSAMIDE
     Indication: Partial seizures
     Dosage: UNK
     Route: 065
     Dates: start: 20220915
  7. VIMPAT [Concomitant]
     Active Substance: LACOSAMIDE
     Dosage: 400 MILLIGRAM
     Route: 065
     Dates: start: 202305
  8. TEMESTA [Concomitant]
     Indication: Partial seizures
     Dosage: 0.5 MILLIGRAM
     Route: 065
     Dates: start: 202305, end: 20231130
  9. TEMESTA [Concomitant]
     Dosage: 1 MILLIGRAM
     Route: 065
     Dates: start: 20231130, end: 20231220
  10. TEMESTA [Concomitant]
     Dosage: 0.5 MILLIGRAM
     Route: 065
     Dates: start: 20231220
  11. MIDAZOLAM HYDROCHLORIDE [Concomitant]
     Active Substance: MIDAZOLAM HYDROCHLORIDE
     Indication: Partial seizures
     Dosage: 10 MILLIGRAM
     Route: 065
     Dates: start: 20240110

REACTIONS (2)
  - Exposure during pregnancy [Recovered/Resolved]
  - Clonic convulsion [Unknown]

NARRATIVE: CASE EVENT DATE: 20230518
